FAERS Safety Report 16482673 (Version 2)
Quarter: 2019Q4

REPORT INFORMATION
  Report Type: Spontaneous
  Country: FR (occurrence: FR)
  Receive Date: 20190627
  Receipt Date: 20191130
  Transmission Date: 20200122
  Serious: Yes (Hospitalization)
  Sender: FDA-Public Use
  Company Number: FR-ACCORD-135299

PATIENT
  Age: 47 Year
  Sex: Male

DRUGS (2)
  1. BUSPIRONE [Suspect]
     Active Substance: BUSPIRONE HYDROCHLORIDE
     Indication: PRODUCT USED FOR UNKNOWN INDICATION
     Route: 048
     Dates: start: 2019
  2. BACLOFEN. [Suspect]
     Active Substance: BACLOFEN
     Indication: PRODUCT USED FOR UNKNOWN INDICATION
     Route: 048
     Dates: start: 2017

REACTIONS (5)
  - Hypomania [Recovered/Resolved]
  - Drug dependence [Recovering/Resolving]
  - Intentional product misuse [Unknown]
  - Agitation [Recovered/Resolved]
  - Persecutory delusion [Recovered/Resolved]

NARRATIVE: CASE EVENT DATE: 2019
